FAERS Safety Report 6389544-3 (Version None)
Quarter: 2009Q4

REPORT INFORMATION
  Report Type: 
  Country: None (occurrence: None)
  Receive Date: 20091003
  Receipt Date: 20090917
  Transmission Date: 20100525
  Serious: Yes (Death, Hospitalization)
  Sender: FDA-Public Use
  Company Number: A-NJ2009-25743

PATIENT
  Age: 51 Year
  Sex: Female

DRUGS (4)
  1. TRACLEER [Suspect]
     Indication: PULMONARY ARTERIAL HYPERTENSION
     Dosage: ORAL
     Route: 048
     Dates: end: 20090602
  2. REVATIO [Concomitant]
  3. METOPROLOL TARTRATE [Concomitant]
  4. VALSARTAN [Concomitant]

REACTIONS (4)
  - CARDIAC FAILURE [None]
  - DIALYSIS [None]
  - FLUID OVERLOAD [None]
  - HYPOTENSION [None]
